FAERS Safety Report 9571223 (Version 1)
Quarter: 2013Q4

REPORT INFORMATION
  Report Type: Report from Study
  Country: US (occurrence: US)
  Receive Date: 20131001
  Receipt Date: 20131001
  Transmission Date: 20140711
  Serious: Yes (Congenital Anomaly)
  Sender: FDA-Public Use
  Company Number: GXBR2013US001729

PATIENT
  Age: 0 Day
  Sex: Male

DRUGS (1)
  1. RIBAVIRIN CAPSULES [Suspect]
     Dosage: MATERNAL DOSE: UNKNOWN
     Route: 064

REACTIONS (2)
  - Deafness congenital [Not Recovered/Not Resolved]
  - Foetal exposure during pregnancy [Recovered/Resolved]
